FAERS Safety Report 14277535 (Version 2)
Quarter: 2017Q4

REPORT INFORMATION
  Report Type: Spontaneous
  Country: DE (occurrence: DE)
  Receive Date: 20171212
  Receipt Date: 20171220
  Transmission Date: 20180321
  Serious: Yes (Hospitalization, Other)
  Sender: FDA-Public Use
  Company Number: PHHY2017DE179737

PATIENT
  Age: 69 Year
  Sex: Male
  Weight: 90 kg

DRUGS (25)
  1. DEXAMETHASONE. [Suspect]
     Active Substance: DEXAMETHASONE
     Indication: VISION BLURRED
  2. ZELBORAF [Suspect]
     Active Substance: VEMURAFENIB
     Dosage: 1920 MG, QD
     Route: 048
     Dates: start: 20170907
  3. ASPIRIN. [Concomitant]
     Active Substance: ASPIRIN
     Indication: HYPERTENSION
     Dosage: 100 MG, QD
     Route: 048
     Dates: start: 20140501
  4. METOPROLOL. [Concomitant]
     Active Substance: METOPROLOL
     Indication: VASCULAR GRAFT
  5. DEXAMETHASONE. [Suspect]
     Active Substance: DEXAMETHASONE
     Indication: PROCEDURAL HEADACHE
     Dosage: 2 MG, QD
     Route: 048
     Dates: start: 20170922
  6. ZELBORAF [Suspect]
     Active Substance: VEMURAFENIB
     Dosage: 1440 MG, QD
     Route: 048
     Dates: start: 20170904, end: 20170906
  7. METOPROLOL. [Concomitant]
     Active Substance: METOPROLOL
     Indication: HYPERTENSION
     Dosage: 95 MG, Q12H
     Route: 048
     Dates: start: 20140501
  8. DEXAMETHASONE. [Suspect]
     Active Substance: DEXAMETHASONE
     Indication: METASTASES TO CENTRAL NERVOUS SYSTEM
     Dosage: 12 MG, QD
     Route: 048
     Dates: start: 20170828, end: 20170831
  9. SIMVASTATIN. [Concomitant]
     Active Substance: SIMVASTATIN
     Indication: HYPERTENSION
     Dosage: 30 MG, QD
     Route: 048
     Dates: start: 20150501
  10. COBIMETINIB. [Suspect]
     Active Substance: COBIMETINIB
     Dosage: 60 MG, QD (20 MG X 3 (60 MG))
     Route: 048
     Dates: start: 20170904
  11. NOVAMINSULFON [Concomitant]
     Active Substance: METAMIZOLE
     Indication: PRODUCT USED FOR UNKNOWN INDICATION
     Dosage: 500 MG, UNK
     Route: 048
  12. COBIMETINIB. [Suspect]
     Active Substance: COBIMETINIB
     Indication: METASTATIC MALIGNANT MELANOMA
     Dosage: 60 MG, QD (DOSE 20 MG X 3)
     Route: 048
     Dates: start: 20170823, end: 20170828
  13. ZELBORAF [Suspect]
     Active Substance: VEMURAFENIB
     Dosage: 960 MG, QD
     Route: 048
     Dates: start: 20170826, end: 20170828
  14. ZELBORAF [Suspect]
     Active Substance: VEMURAFENIB
     Dosage: 960 MG, QD
     Route: 048
     Dates: start: 20170831, end: 20170903
  15. RAMIPRIL. [Concomitant]
     Active Substance: RAMIPRIL
     Indication: HYPERTENSION
     Dosage: 5 MG, QD
     Route: 048
     Dates: start: 20140501
  16. SIMVASTATIN. [Concomitant]
     Active Substance: SIMVASTATIN
     Indication: VASCULAR GRAFT
  17. DEXAMETHASONE. [Suspect]
     Active Substance: DEXAMETHASONE
     Indication: PROCEDURAL NAUSEA
     Dosage: 8 MG, QD
     Route: 048
     Dates: start: 20170901, end: 20170903
  18. LEVETIRACETAM. [Concomitant]
     Active Substance: LEVETIRACETAM
     Indication: METASTASES TO CENTRAL NERVOUS SYSTEM
     Dosage: 1250 MG, Q12H
     Route: 048
  19. ASPIRIN. [Concomitant]
     Active Substance: ASPIRIN
     Indication: VASCULAR GRAFT
  20. MONO EMBOLEX [Concomitant]
     Active Substance: CERTOPARIN SODIUM
     Indication: PROPHYLAXIS
     Dosage: 1 DF, QD
     Route: 058
     Dates: start: 20170131
  21. DEXAMETHASONE. [Suspect]
     Active Substance: DEXAMETHASONE
     Indication: PROCEDURAL VOMITING
     Dosage: 4 MG, QD
     Route: 048
     Dates: start: 20170904, end: 20170921
  22. ZELBORAF [Suspect]
     Active Substance: VEMURAFENIB
     Indication: METASTATIC MALIGNANT MELANOMA
     Dosage: 960 MG, QD (DOSE 240 MG X 4)
     Route: 048
     Dates: start: 20170823, end: 20170826
  23. COBIMETINIB. [Suspect]
     Active Substance: COBIMETINIB
     Dosage: 40 MG, QD
     Route: 048
     Dates: start: 20170831, end: 20170903
  24. RAMIPRIL. [Concomitant]
     Active Substance: RAMIPRIL
     Indication: VASCULAR GRAFT
     Dosage: 5 MG, UNK
     Route: 048
     Dates: start: 20140501, end: 20171102
  25. PANTOPRAZOLE [Concomitant]
     Active Substance: PANTOPRAZOLE
     Indication: PRODUCT USED FOR UNKNOWN INDICATION
     Dosage: 40 MG, QD
     Route: 048
     Dates: start: 20170201

REACTIONS (10)
  - Brain oedema [Recovered/Resolved]
  - Photosensitivity reaction [Unknown]
  - Subcutaneous abscess [Recovered/Resolved]
  - Hyperglycaemia [Recovering/Resolving]
  - Dermal cyst [Not Recovered/Not Resolved]
  - Skin infection [Unknown]
  - Vision blurred [Not Recovered/Not Resolved]
  - Skin hypopigmentation [Not Recovered/Not Resolved]
  - Retinal cyst [Not Recovered/Not Resolved]
  - Fatigue [Not Recovered/Not Resolved]

NARRATIVE: CASE EVENT DATE: 20170823
